FAERS Safety Report 6449487-3 (Version None)
Quarter: 2009Q4

REPORT INFORMATION
  Report Type: 
  Country: None (occurrence: None)
  Receive Date: 20091120
  Receipt Date: 20091109
  Transmission Date: 20100525
  Serious: Yes (Hospitalization)
  Sender: FDA-Public Use
  Company Number: NZ-ELI_LILLY_AND_COMPANY-NZ200911001819

PATIENT
  Age: 30 Year
  Sex: Male

DRUGS (5)
  1. ZYPREXA [Suspect]
     Indication: SCHIZOPHRENIA
     Dosage: 35 MG, DAILY (1/D)
     Route: 048
     Dates: start: 20080101
  2. ZYPREXA [Suspect]
     Dosage: 20 MG, AS NEEDED
     Route: 048
     Dates: start: 20080101
  3. ZYPREXA [Suspect]
     Dosage: 25 MG, DAILY (1/D)
     Route: 048
  4. ZYPREXA [Suspect]
     Dosage: 20 MG, AS NEEDED
     Route: 048
  5. QUETIAPINE [Concomitant]
     Indication: SCHIZOPHRENIA
     Dosage: 150 MG, 2/D
     Route: 065

REACTIONS (4)
  - DRUG INEFFECTIVE [None]
  - HALLUCINATION, AUDITORY [None]
  - OVERDOSE [None]
  - SUICIDAL IDEATION [None]
